FAERS Safety Report 4295022-8 (Version None)
Quarter: 2004Q1

REPORT INFORMATION
  Report Type: 
  Country: None (occurrence: None)
  Receive Date: 20040211
  Receipt Date: 20040130
  Transmission Date: 20041129
  Serious: Yes (Hospitalization)
  Sender: FDA-Public Use
  Company Number: 04P-056-0249097-00

PATIENT
  Age: 43 Year
  Sex: Male
  Weight: 64 kg

DRUGS (3)
  1. TRICOR [Suspect]
     Indication: HYPERTRIGLYCERIDAEMIA
     Dosage: 200 MG, 1 IN 1 D, ORAL
     Route: 048
  2. EFAVIRENZ [Concomitant]
  3. ZIDOVUDINE W/LAMIVUDINE [Concomitant]

REACTIONS (1)
  - NEPHROLITHIASIS [None]
